FAERS Safety Report 9631643 (Version 4)
Quarter: 2014Q3

REPORT INFORMATION
  Report Type: Spontaneous
  Country: JP (occurrence: JP)
  Receive Date: 20131018
  Receipt Date: 20140917
  Transmission Date: 20150326
  Serious: Yes (Other)
  Sender: FDA-Public Use
  Company Number: JP-ASTELLAS-2013JP011083

PATIENT
  Age: 2 Year
  Sex: Female

DRUGS (3)
  1. INTAL [Concomitant]
     Active Substance: CROMOLYN SODIUM
     Indication: ANTIALLERGIC THERAPY
     Dosage: UNK, UNKNOWN FREQ.
     Route: 048
  2. PRANLUKAST [Concomitant]
     Active Substance: PRANLUKAST
     Indication: ANTIALLERGIC THERAPY
     Dosage: UNK, UNKNOWN FREQ.
     Route: 048
  3. PROGRAF [Suspect]
     Active Substance: TACROLIMUS\TACROLIMUS ANHYDROUS
     Indication: IMMUNOSUPPRESSION
     Dosage: UNK, UNKNOWN FREQ.
     Route: 048

REACTIONS (3)
  - Food allergy [Recovering/Resolving]
  - Asthma [Recovering/Resolving]
  - Dermatitis atopic [Recovering/Resolving]
